FAERS Safety Report 25578149 (Version 2)
Quarter: 2025Q3

REPORT INFORMATION
  Report Type: Spontaneous
  Country: RU (occurrence: RU)
  Receive Date: 20250718
  Receipt Date: 20250908
  Transmission Date: 20251021
  Serious: Yes (Death, Other)
  Sender: IPSEN BIOPHARMACEUTICALS, INC.
  Company Number: RU-IPSEN Group, Research and Development-2025-17184

PATIENT
  Age: 38 Year
  Sex: Female
  Weight: 90 kg

DRUGS (4)
  1. LANREOTIDE ACETATE [Suspect]
     Active Substance: LANREOTIDE ACETATE
     Indication: Gastroenteropancreatic neuroendocrine tumour disease
     Dosage: 1 TIME PER 28 DAYS
     Route: 058
     Dates: start: 202102, end: 202409
  2. LANREOTIDE ACETATE [Suspect]
     Active Substance: LANREOTIDE ACETATE
     Indication: Carcinoid syndrome
  3. BEVACIZUMAB [Suspect]
     Active Substance: BEVACIZUMAB
     Indication: Gastroenteropancreatic neuroendocrine tumour disease
  4. BEVACIZUMAB [Suspect]
     Active Substance: BEVACIZUMAB
     Indication: Carcinoid syndrome

REACTIONS (4)
  - Sepsis [Fatal]
  - Malignant neoplasm progression [Unknown]
  - Cholangitis [Unknown]
  - Haemorrhage [Unknown]
